FAERS Safety Report 16208576 (Version 1)
Quarter: 2019Q2

REPORT INFORMATION
  Report Type: Spontaneous
  Country: US (occurrence: US)
  Receive Date: 20190417
  Receipt Date: 20190417
  Transmission Date: 20190711
  Serious: Yes (Other)
  Sender: FDA-Public Use
  Company Number: US-PFIZER INC-2019160336

PATIENT
  Age: 58 Year
  Sex: Female
  Weight: 85.73 kg

DRUGS (2)
  1. LYRICA [Suspect]
     Active Substance: PREGABALIN
     Indication: NEUROPATHY PERIPHERAL
     Dosage: UNK
  2. LYRICA [Suspect]
     Active Substance: PREGABALIN
     Indication: SYSTEMIC LUPUS ERYTHEMATOSUS

REACTIONS (5)
  - Glycosylated haemoglobin increased [Unknown]
  - Joint injury [Unknown]
  - Arthritis [Not Recovered/Not Resolved]
  - Blood glucose increased [Unknown]
  - Intentional self-injury [Unknown]
